FAERS Safety Report 8606821-3 (Version None)
Quarter: 2012Q3

REPORT INFORMATION
  Report Type: 
  Country: None (occurrence: None)
  Receive Date: 20120820
  Receipt Date: 20120809
  Transmission Date: 20120928
  Serious: No
  Sender: FDA-Public Use
  Company Number: US-ASTRAZENECA-2012SE43716

PATIENT
  Age: 55 Year
  Sex: Female

DRUGS (2)
  1. LUXIPROL [Concomitant]
  2. TOPROL-XL [Suspect]
     Route: 048

REACTIONS (3)
  - MANIA [None]
  - ANXIETY DISORDER DUE TO A GENERAL MEDICAL CONDITION [None]
  - PANIC ATTACK [None]
